FAERS Safety Report 6053608-4 (Version None)
Quarter: 2009Q1

REPORT INFORMATION
  Report Type: 
  Country: None (occurrence: None)
  Receive Date: 20090127
  Receipt Date: 20071207
  Transmission Date: 20090719
  Serious: Yes (Hospitalization)
  Sender: FDA-Public Use
  Company Number: US-TEVA-165109USA

PATIENT
  Age: 70 Year
  Sex: Female

DRUGS (2)
  1. COPAXONE [Suspect]
     Indication: MULTIPLE SCLEROSIS
     Route: 058
     Dates: start: 20050401, end: 20050501
  2. WARFARIN SODIUM [Suspect]
     Dates: start: 20050501, end: 20050701

REACTIONS (4)
  - ATRIAL FIBRILLATION [None]
  - ESCHERICHIA INFECTION [None]
  - HAEMORRHAGE [None]
  - THROMBOSIS [None]
